FAERS Safety Report 5892724-4 (Version None)
Quarter: 2008Q3

REPORT INFORMATION
  Report Type: 
  Country: None (occurrence: None)
  Receive Date: 20080923
  Receipt Date: 20080918
  Transmission Date: 20090109
  Serious: Yes (Other)
  Sender: FDA-Public Use
  Company Number: PHEH2008US08427

PATIENT

DRUGS (1)
  1. GLEEVEC [Suspect]
     Route: 064

REACTIONS (2)
  - CONGENITAL SPINAL CORD ANOMALY [None]
  - DRUG EXPOSURE DURING PREGNANCY [None]
